FAERS Safety Report 11571982 (Version 1)
Quarter: 2015Q3

REPORT INFORMATION
  Report Type: Spontaneous
  Country: US (occurrence: US)
  Receive Date: 20150929
  Receipt Date: 20150929
  Transmission Date: 20151125
  Serious: No
  Sender: FDA-Public Use
  Company Number: US-SA-2015SA128915

PATIENT
  Age: 55 Year
  Sex: Female

DRUGS (18)
  1. CALCIUM [Concomitant]
     Active Substance: CALCIUM
  2. STOOL SOFTENER [Concomitant]
     Active Substance: DOCUSATE CALCIUM
  3. PLEGRIDY [Concomitant]
     Active Substance: PEGINTERFERON BETA-1A
  4. AUBAGIO [Suspect]
     Active Substance: TERIFLUNOMIDE
     Indication: PRODUCT USED FOR UNKNOWN INDICATION
     Route: 065
     Dates: start: 20150507
  5. VITAMIN C [Concomitant]
     Active Substance: ASCORBIC ACID
  6. ALEVE [Concomitant]
     Active Substance: NAPROXEN SODIUM
  7. MINOCYCLINE [Concomitant]
     Active Substance: MINOCYCLINE\MINOCYCLINE HYDROCHLORIDE
  8. VITAMIN D [Concomitant]
     Active Substance: CHOLECALCIFEROL
  9. FISH OIL [Concomitant]
     Active Substance: FISH OIL
  10. MODAFINIL. [Concomitant]
     Active Substance: MODAFINIL
  11. DIAZEPAM. [Concomitant]
     Active Substance: DIAZEPAM
  12. AMPYRA [Suspect]
     Active Substance: DALFAMPRIDINE
     Indication: MULTIPLE SCLEROSIS
     Dosage: THERAPY START: OVER A YEAR
     Route: 048
  13. NALTREXONE [Concomitant]
     Active Substance: NALTREXONE
  14. CYMBALTA [Concomitant]
     Active Substance: DULOXETINE HYDROCHLORIDE
  15. CIPROFLOXACIN. [Concomitant]
     Active Substance: CIPROFLOXACIN
  16. ASPIRIN. [Concomitant]
     Active Substance: ASPIRIN
  17. LISINOPRIL. [Concomitant]
     Active Substance: LISINOPRIL
  18. RIFAMPIN. [Concomitant]
     Active Substance: RIFAMPIN

REACTIONS (1)
  - Fall [Recovered/Resolved]

NARRATIVE: CASE EVENT DATE: 201505
